FAERS Safety Report 13222998 (Version 1)
Quarter: 2017Q1

REPORT INFORMATION
  Report Type: Other
  Country: US (occurrence: US)
  Receive Date: 20170212
  Receipt Date: 20170212
  Transmission Date: 20170428
  Serious: No
  Sender: FDA-Public Use
  Company Number: US-ACORDA-ACO_122756_2016

PATIENT
  Age: 66 Year
  Sex: Female

DRUGS (2)
  1. AMPYRA [Suspect]
     Active Substance: DALFAMPRIDINE
     Dosage: 10 MG, BID
     Route: 048
     Dates: start: 20160120
  2. AMPYRA [Suspect]
     Active Substance: DALFAMPRIDINE
     Indication: OFF LABEL USE
     Dosage: 10 MG, BID
     Route: 048
     Dates: end: 20160115

REACTIONS (3)
  - Adverse event [Recovered/Resolved]
  - Therapy cessation [Unknown]
  - Off label use [Unknown]

NARRATIVE: CASE EVENT DATE: 20160115
